FAERS Safety Report 6524727-0 (Version None)
Quarter: 2009Q4

REPORT INFORMATION
  Report Type: 
  Country: None (occurrence: None)
  Receive Date: 20091222
  Receipt Date: 20091208
  Transmission Date: 20100525
  Serious: Yes (Hospitalization)
  Sender: FDA-Public Use
  Company Number: 1000009512

PATIENT
  Age: 74 Year
  Sex: Male
  Weight: 57 kg

DRUGS (3)
  1. ESCITALOPRAM OXALATE [Suspect]
     Indication: DEPRESSION
     Dosage: 20 MG (20 MG, 1 IN 1 D), ORAL
     Route: 048
     Dates: start: 20091007, end: 20091013
  2. ESCITALOPRAM OXALATE [Suspect]
     Indication: DEPRESSION
     Dosage: 10 MG (10 MG, 1 IN 1 D), ORAL
     Route: 048
     Dates: start: 20091014
  3. ERGENYL [Concomitant]

REACTIONS (6)
  - BLOOD PRESSURE DECREASED [None]
  - DECREASED APPETITE [None]
  - DYSGEUSIA [None]
  - PERIPHERAL COLDNESS [None]
  - TREMOR [None]
  - WEIGHT DECREASED [None]
